FAERS Safety Report 11080198 (Version 1)
Quarter: 2015Q2

REPORT INFORMATION
  Report Type: Report from Study
  Country: AU (occurrence: AU)
  Receive Date: 20150430
  Receipt Date: 20150430
  Transmission Date: 20150821
  Serious: Yes (Hospitalization)
  Sender: FDA-Public Use
  Company Number: AU-ABBVIE-13P-008-1182363-00

PATIENT
  Sex: Female

DRUGS (3)
  1. DUODOPA [Suspect]
     Active Substance: CARBIDOPA\LEVODOPA
     Route: 050
  2. DUODOPA [Suspect]
     Active Substance: CARBIDOPA\LEVODOPA
     Indication: PRODUCT USED FOR UNKNOWN INDICATION
     Route: 050
     Dates: end: 20140205
  3. MADOPAR [Concomitant]
     Active Substance: BENSERAZIDE HYDROCHLORIDE\LEVODOPA
     Indication: PRODUCT USED FOR UNKNOWN INDICATION

REACTIONS (11)
  - Delusion [Unknown]
  - Laceration [Unknown]
  - Abnormal behaviour [Unknown]
  - Fall [Unknown]
  - Intentional self-injury [Unknown]
  - Impulsive behaviour [Unknown]
  - Suture insertion [Unknown]
  - Insomnia [Unknown]
  - Mental disorder [Unknown]
  - Device dislocation [Unknown]
  - Depressed level of consciousness [Unknown]
